FAERS Safety Report 6603711-2 (Version None)
Quarter: 2010Q1

REPORT INFORMATION
  Report Type: 
  Country: None (occurrence: None)
  Receive Date: 20100226
  Receipt Date: 20090713
  Transmission Date: 20100710
  Serious: No
  Sender: FDA-Public Use
  Company Number: A0659682A

PATIENT
  Age: 70 Year
  Sex: Female

DRUGS (11)
  1. LAMICTAL CD [Suspect]
     Indication: PARTIAL SEIZURES
     Route: 048
     Dates: end: 20060101
  2. PHENOBARBITAL TAB [Concomitant]
  3. PREDNISONE TAB [Concomitant]
  4. PREVACID [Concomitant]
  5. ACYCLOVIR [Concomitant]
  6. ALBUTEROL [Concomitant]
  7. FUROSEMIDE [Concomitant]
  8. POTASSIUM CHLORIDE [Concomitant]
  9. PANCREASE MT16 [Concomitant]
  10. NABUMETONE [Concomitant]
  11. METOCLOPRAMIDE HYDROCHLORIDE [Concomitant]

REACTIONS (9)
  - DUPUYTREN'S CONTRACTURE [None]
  - FLUID RETENTION [None]
  - INSOMNIA [None]
  - PALPITATIONS [None]
  - PRURITUS [None]
  - RASH [None]
  - SKIN DISCOLOURATION [None]
  - URTICARIA [None]
  - VASODILATATION [None]
